FAERS Safety Report 11545402 (Version 1)
Quarter: 2015Q3

REPORT INFORMATION
  Report Type: Spontaneous
  Country: IT (occurrence: IT)
  Receive Date: 20150924
  Receipt Date: 20150924
  Transmission Date: 20151125
  Serious: Yes (Hospitalization)
  Sender: FDA-Public Use
  Company Number: IT-TEVA-595016ACC

PATIENT
  Age: 81 Year
  Sex: Female

DRUGS (1)
  1. AMIODARONE HYDROCHLORIDE. [Suspect]
     Active Substance: AMIODARONE HYDROCHLORIDE
     Indication: ATRIAL FIBRILLATION
     Dosage: 1 DOSAGE FORMS DAILY; 1 DF DAILY
     Route: 048
     Dates: start: 20150601, end: 20150828

REACTIONS (3)
  - Hypokalaemia [Unknown]
  - Sinus bradycardia [Unknown]
  - Syncope [Unknown]

NARRATIVE: CASE EVENT DATE: 20150828
